FAERS Safety Report 10078972 (Version 1)
Quarter: 2014Q2

REPORT INFORMATION
  Report Type: Spontaneous
  Country: US (occurrence: None)
  Receive Date: 20140414
  Receipt Date: 20140414
  Transmission Date: 20141212
  Serious: No
  Sender: FDA-Public Use
  Company Number: None

PATIENT
  Age: 62 Year
  Sex: Male
  Weight: 103.42 kg

DRUGS (7)
  1. ALVESCO [Suspect]
     Indication: ASTHMA
     Route: 055
     Dates: start: 20140310, end: 20140313
  2. FLONASE [Concomitant]
  3. ASTELIN [Concomitant]
  4. ALLEGRA [Concomitant]
  5. ASPIRIN [Concomitant]
  6. LOVASTATIN [Concomitant]
  7. MOTRIN [Concomitant]

REACTIONS (1)
  - Dysphonia [None]
